FAERS Safety Report 9561614 (Version 1)
Quarter: 2013Q3

REPORT INFORMATION
  Report Type: Spontaneous
  Country: US (occurrence: US)
  Receive Date: 20130927
  Receipt Date: 20130927
  Transmission Date: 20140515
  Serious: No
  Sender: FDA-Public Use
  Company Number: US-BIOGENIDEC-2013BI061559

PATIENT
  Sex: Female

DRUGS (4)
  1. TECFIDERA [Suspect]
     Indication: MULTIPLE SCLEROSIS
     Route: 048
     Dates: start: 20130612
  2. XANAX [Concomitant]
  3. FLEXERIL [Concomitant]
  4. CELEXA [Concomitant]

REACTIONS (3)
  - Flushing [Unknown]
  - Nausea [Unknown]
  - Hot flush [Unknown]
